FAERS Safety Report 9491969 (Version 1)
Quarter: 2013Q3

REPORT INFORMATION
  Report Type: Spontaneous
  Country: AU (occurrence: None)
  Receive Date: 20130827
  Receipt Date: 20130827
  Transmission Date: 20140515
  Serious: Yes (Other)
  Sender: FDA-Public Use
  Company Number: AUR-APL-2013-06921

PATIENT
  Age: 21 Year
  Sex: Female

DRUGS (2)
  1. MIRTAZAPINE [Suspect]
     Indication: PRODUCT USED FOR UNKNOWN INDICATION
     Dosage: UNKNOWN, STOPPED
  2. PRISTIQ (DESVENLAFAXINE SUCCINATE) [Suspect]
     Indication: MAJOR DEPRESSION
     Route: 048
     Dates: start: 20130201

REACTIONS (3)
  - Enuresis [None]
  - Weight increased [None]
  - Depression [None]
